FAERS Safety Report 25613426 (Version 1)
Quarter: 2025Q3

REPORT INFORMATION
  Report Type: Spontaneous
  Country: US (occurrence: US)
  Receive Date: 20250728
  Receipt Date: 20250728
  Transmission Date: 20251020
  Serious: No
  Sender: INCYTE
  Company Number: US-EVENT-003676

PATIENT
  Age: 89 Year

DRUGS (1)
  1. OPZELURA [Suspect]
     Active Substance: RUXOLITINIB PHOSPHATE
     Indication: Product used for unknown indication
     Dosage: 1.5 PERCENT, THIN LAYER TO AFFECTED AREA(S) TWICE DAILY AS DIRECTED
     Route: 065

REACTIONS (1)
  - Cough [Unknown]
